FAERS Safety Report 4777948-1 (Version None)
Quarter: 2005Q3

REPORT INFORMATION
  Report Type: 
  Country: None (occurrence: None)
  Receive Date: 20050921
  Receipt Date: 20050906
  Transmission Date: 20060218
  Serious: Yes (Hospitalization)
  Sender: FDA-Public Use
  Company Number: FR_050907068

PATIENT
  Age: 38 Year
  Sex: Male

DRUGS (3)
  1. ZYPREXA [Suspect]
     Dosage: 1 DSG FORM/2 DAY
     Dates: start: 20050802, end: 20050804
  2. LEPTICUR (TROPATEPINE HYDROCHLORIDE0 [Concomitant]
  3. TRANXENE [Concomitant]

REACTIONS (2)
  - PETECHIAE [None]
  - PURPURA [None]
